FAERS Safety Report 7215159-0 (Version None)
Quarter: 2011Q1

REPORT INFORMATION
  Report Type: 
  Country: None (occurrence: None)
  Receive Date: 20110107
  Receipt Date: 20101201
  Transmission Date: 20110831
  Serious: No
  Sender: FDA-Public Use
  Company Number: A0882955A

PATIENT
  Age: 67 Year
  Sex: Female

DRUGS (4)
  1. CLARITIN-D [Concomitant]
  2. PATANOL [Concomitant]
  3. LOVAZA [Suspect]
     Dosage: 2CAP TWICE PER DAY
     Route: 048
     Dates: start: 20091023
  4. NASONEX [Concomitant]

REACTIONS (3)
  - THROAT IRRITATION [None]
  - PRODUCT QUALITY ISSUE [None]
  - STOMATITIS [None]
